FAERS Safety Report 8215029-5 (Version None)
Quarter: 2012Q1

REPORT INFORMATION
  Report Type: 
  Country: None (occurrence: None)
  Receive Date: 20120316
  Receipt Date: 20120308
  Transmission Date: 20120608
  Serious: Yes (Other)
  Sender: FDA-Public Use
  Company Number: JP-ROXANE LABORATORIES, INC.-2012-RO-00810RO

PATIENT
  Age: 66 Year
  Sex: Male

DRUGS (5)
  1. RIFAMPICIN [Suspect]
     Indication: MYCOBACTERIUM AVIUM COMPLEX INFECTION
  2. FLUTICASONE FUROATE [Suspect]
     Indication: ASTHMA
     Dosage: 800 MCG
     Route: 055
  3. PREDNISOLONE [Suspect]
     Indication: ASTHMA
  4. CLARITHROMYCIN [Suspect]
     Indication: MYCOBACTERIUM AVIUM COMPLEX INFECTION
  5. ETHAMBUTOL HYDROCHLORIDE [Suspect]
     Indication: MYCOBACTERIUM AVIUM COMPLEX INFECTION

REACTIONS (2)
  - BRONCHITIS HAEMOPHILUS [None]
  - MYCOBACTERIUM AVIUM COMPLEX INFECTION [None]
